FAERS Safety Report 23724522 (Version 1)
Quarter: 2024Q2

REPORT INFORMATION
  Report Type: Spontaneous
  Country: US (occurrence: US)
  Receive Date: 20240409
  Receipt Date: 20240409
  Transmission Date: 20240716
  Serious: No
  Sender: FDA-Public Use
  Company Number: US-FOUNDATIONCONSUMERHC-2023-US-028295

PATIENT
  Age: 28 Year
  Sex: Female
  Weight: 59.87 kg

DRUGS (2)
  1. PLAN B ONE-STEP [Suspect]
     Active Substance: LEVONORGESTREL
     Indication: Post coital contraception
     Dosage: 1.5 MG X 1 DOSE
     Route: 048
     Dates: start: 20230902, end: 20230902
  2. IBUPROFEN [Concomitant]
     Active Substance: IBUPROFEN
     Dosage: 800 MG

REACTIONS (4)
  - Headache [Recovered/Resolved]
  - Condition aggravated [Recovered/Resolved]
  - Abdominal pain lower [Not Recovered/Not Resolved]
  - Dyspepsia [Not Recovered/Not Resolved]

NARRATIVE: CASE EVENT DATE: 20230902
